FAERS Safety Report 9379524 (Version 1)
Quarter: 2013Q3

REPORT INFORMATION
  Report Type: Spontaneous
  Country: FR (occurrence: FR)
  Receive Date: 20130702
  Receipt Date: 20130702
  Transmission Date: 20140515
  Serious: Yes (Other)
  Sender: FDA-Public Use
  Company Number: FR-PFIZER INC-2013191082

PATIENT
  Age: 52 Year
  Sex: Female

DRUGS (1)
  1. AMLOR [Suspect]
     Dosage: 5 MG, 1X/DAY

REACTIONS (2)
  - Hepatic steatosis [Unknown]
  - Thyroid neoplasm [Unknown]
